FAERS Safety Report 12330426 (Version 1)
Quarter: 2016Q2

REPORT INFORMATION
  Report Type: Spontaneous
  Country: US (occurrence: US)
  Receive Date: 20160504
  Receipt Date: 20160504
  Transmission Date: 20160815
  Serious: No
  Sender: FDA-Public Use
  Company Number: US-009507513-1604USA016705

PATIENT
  Age: 51 Year
  Sex: Female
  Weight: 99.79 kg

DRUGS (12)
  1. PRINIVIL [Suspect]
     Active Substance: LISINOPRIL
     Indication: BLOOD PRESSURE ABNORMAL
     Dosage: 2.5 MG, QD
     Route: 048
     Dates: start: 201203
  2. AMITRIPTYLINE HYDROCHLORIDE. [Suspect]
     Active Substance: AMITRIPTYLINE HYDROCHLORIDE
     Indication: NEUROPATHY PERIPHERAL
     Dosage: 25 MG, QD
     Route: 048
     Dates: start: 2015
  3. LYRICA [Concomitant]
     Active Substance: PREGABALIN
     Dosage: 1 TABLET DAILY
     Dates: start: 201603
  4. LYRICA [Concomitant]
     Active Substance: PREGABALIN
     Indication: DIABETIC NEUROPATHY
     Dosage: UNK
  5. METFORMIN [Concomitant]
     Active Substance: METFORMIN HYDROCHLORIDE
     Dosage: UNK
     Dates: start: 200003, end: 2014
  6. OMEGA-3 MARINE TRIGLYCERIDES [Concomitant]
     Active Substance: FISH OIL
     Indication: BLOOD CHOLESTEROL ABNORMAL
     Dosage: 1000 MG CAPSULE ONCE DAILY
  7. ACTOS [Concomitant]
     Active Substance: PIOGLITAZONE HYDROCHLORIDE
     Indication: TYPE 2 DIABETES MELLITUS
     Dosage: UNK
     Dates: start: 2013
  8. CLOPIDOGREL [Concomitant]
     Active Substance: CLOPIDOGREL BISULFATE
     Indication: ANTICOAGULANT THERAPY
     Dosage: 75 MG, QD
     Dates: start: 201203
  9. ACTOS [Concomitant]
     Active Substance: PIOGLITAZONE HYDROCHLORIDE
     Dosage: UNK
     Dates: end: 201107
  10. HYDROCHLOROTHIAZIDE. [Suspect]
     Active Substance: HYDROCHLOROTHIAZIDE
     Indication: BLOOD PRESSURE ABNORMAL
     Dosage: 25 MG, QD
     Route: 048
     Dates: start: 201203
  11. CINNAMON. [Concomitant]
     Active Substance: CINNAMON
     Indication: BLOOD GLUCOSE ABNORMAL
     Dosage: 2000 MG CAPSULE TWO IN THE MORNING AND ONE AT NIGHT
     Dates: start: 2011
  12. OMEPRAZOLE. [Concomitant]
     Active Substance: OMEPRAZOLE
     Indication: GASTRIC DISORDER
     Dosage: 20 MG, BID

REACTIONS (18)
  - Malaise [Unknown]
  - Nausea [Unknown]
  - Therapeutic response unexpected [Unknown]
  - Skin burning sensation [Not Recovered/Not Resolved]
  - Sciatica [Unknown]
  - Pain [Not Recovered/Not Resolved]
  - Abdominal discomfort [Not Recovered/Not Resolved]
  - Disturbance in attention [Unknown]
  - Pain of skin [Not Recovered/Not Resolved]
  - Weight increased [Unknown]
  - Hypoaesthesia [Unknown]
  - Feeling abnormal [Not Recovered/Not Resolved]
  - Paraesthesia [Unknown]
  - Vitamin D deficiency [Unknown]
  - Fatigue [Unknown]
  - Headache [Not Recovered/Not Resolved]
  - Sciatica [Recovered/Resolved]
  - Insomnia [Not Recovered/Not Resolved]

NARRATIVE: CASE EVENT DATE: 201403
